FAERS Safety Report 17922902 (Version 1)
Quarter: 2020Q2

REPORT INFORMATION
  Report Type: Spontaneous
  Country: ES (occurrence: ES)
  Receive Date: 20200622
  Receipt Date: 20200622
  Transmission Date: 20200714
  Serious: Yes (Other)
  Sender: FDA-Public Use
  Company Number: ES-IPSEN BIOPHARMACEUTICALS, INC.-2020-10809

PATIENT
  Age: 24 Year
  Sex: Female

DRUGS (3)
  1. SOMATULINA [Suspect]
     Active Substance: LANREOTIDE ACETATE
     Indication: NEUROENDOCRINE CARCINOMA METASTATIC
     Dosage: DOSE NOT REPORTED
     Route: 065
     Dates: start: 201809, end: 2018
  2. SOMATULINA [Suspect]
     Active Substance: LANREOTIDE ACETATE
     Dosage: START DATE- UNSPECIFIED MONTH OCT/NOV-2018
     Route: 065
     Dates: start: 2018
  3. SOMATULINA [Suspect]
     Active Substance: LANREOTIDE ACETATE
     Indication: CARCINOID SYNDROME
     Route: 065
     Dates: start: 2018, end: 2018

REACTIONS (2)
  - Condition aggravated [Unknown]
  - Off label use [Unknown]

NARRATIVE: CASE EVENT DATE: 2018
